FAERS Safety Report 18444278 (Version 1)
Quarter: 2020Q4

REPORT INFORMATION
  Report Type: Spontaneous
  Country: ES (occurrence: ES)
  Receive Date: 20201030
  Receipt Date: 20201030
  Transmission Date: 20210114
  Serious: Yes (Death, Hospitalization)
  Sender: FDA-Public Use
  Company Number: NVSC2020ES289046

PATIENT
  Age: 22 Year
  Sex: Male
  Weight: 71 kg

DRUGS (1)
  1. KYMRIAH [Suspect]
     Active Substance: TISAGENLECLEUCEL
     Indication: ACUTE LYMPHOCYTIC LEUKAEMIA
     Dosage: DOSIS UNICA (1.2 X 10E6 6.0 X 10E8 CELULAS DISPERSION PARA PERFUSION 1TO3 BOLSAS PERFUSION
     Route: 042
     Dates: start: 20200730, end: 20200730

REACTIONS (3)
  - Cytokine release syndrome [Recovered/Resolved]
  - Haemophagocytic lymphohistiocytosis [Not Recovered/Not Resolved]
  - Pancreatic necrosis [Fatal]

NARRATIVE: CASE EVENT DATE: 20200731
